FAERS Safety Report 9283944 (Version 1)
Quarter: 2013Q2

REPORT INFORMATION
  Report Type: Spontaneous
  Country: US (occurrence: US)
  Receive Date: 20130510
  Receipt Date: 20130510
  Transmission Date: 20140414
  Serious: No
  Sender: FDA-Public Use
  Company Number: US-COVIDIEN/TYCO HEALTHCARE/MALLINCKRODT-T201301657

PATIENT
  Age: 75 Year
  Sex: Male

DRUGS (1)
  1. FENTANYL TRANSDERMAL SYSTEM [Suspect]
     Indication: PAIN
     Dosage: 50 MCG/HR
     Route: 062

REACTIONS (4)
  - Pain [Recovered/Resolved]
  - Aphasia [Recovered/Resolved]
  - Wrong technique in drug usage process [Recovered/Resolved]
  - Muscle spasms [Recovered/Resolved]
